FAERS Safety Report 16262374 (Version 1)
Quarter: 2019Q2

REPORT INFORMATION
  Report Type: Spontaneous
  Country: US (occurrence: US)
  Receive Date: 20190501
  Receipt Date: 20190501
  Transmission Date: 20190711
  Serious: No
  Sender: FDA-Public Use
  Company Number: US-AMGEN-USASP2019067618

PATIENT
  Sex: Female

DRUGS (1)
  1. NEULASTA [Suspect]
     Active Substance: PEGFILGRASTIM
     Indication: INFLAMMATORY CARCINOMA OF BREAST STAGE III
     Dosage: UNK
     Route: 065

REACTIONS (5)
  - Vomiting [Unknown]
  - Anal incontinence [Unknown]
  - Nausea [Unknown]
  - Fatigue [Unknown]
  - Off label use [Unknown]
